FAERS Safety Report 4994596-9 (Version None)
Quarter: 2006Q2

REPORT INFORMATION
  Report Type: 
  Country: None (occurrence: None)
  Receive Date: 20060505
  Receipt Date: 20060425
  Transmission Date: 20061013
  Serious: Yes (Hospitalization)
  Sender: FDA-Public Use
  Company Number: US-MERCK-0604USA04047

PATIENT
  Age: 50 Year
  Sex: Female
  Weight: 86 kg

DRUGS (6)
  1. VIOXX [Suspect]
     Indication: BACK PAIN
     Route: 048
     Dates: start: 19990801, end: 20040901
  2. ASPIRIN [Concomitant]
     Route: 065
  3. VERAPAMIL [Concomitant]
     Route: 065
  4. IMITREX [Concomitant]
     Route: 065
  5. TEGRETOL [Concomitant]
     Route: 065
  6. ELAVIL [Concomitant]
     Route: 048

REACTIONS (1)
  - CEREBROVASCULAR ACCIDENT [None]
